FAERS Safety Report 7730923-7 (Version None)
Quarter: 2011Q3

REPORT INFORMATION
  Report Type: 
  Country: None (occurrence: None)
  Receive Date: 20110906
  Receipt Date: 20110831
  Transmission Date: 20111222
  Serious: Yes (Death, Hospitalization)
  Sender: FDA-Public Use
  Company Number: US-PFIZER INC-2011131015

PATIENT
  Sex: Female

DRUGS (28)
  1. BISACODYL [Concomitant]
     Dosage: UNK
  2. GUAIFENESIN [Concomitant]
     Dosage: UNK
  3. PROTONIX [Concomitant]
     Dosage: UNK
  4. MULTI-VITAMINS [Concomitant]
     Dosage: UNK
  5. NARCAN [Concomitant]
     Dosage: UNK
  6. TRAZODONE [Concomitant]
     Dosage: UNK
  7. TYLENOL-500 [Concomitant]
     Dosage: UNK
  8. DRONABINOL [Concomitant]
     Dosage: UNK
  9. MIDODRINE [Concomitant]
     Dosage: UNK
  10. MIRALAX [Concomitant]
     Dosage: UNK
  11. PHENERGAN HCL [Concomitant]
     Dosage: UNK
  12. OXAZEPAM [Concomitant]
     Dosage: UNK
  13. REVATIO [Suspect]
     Indication: PULMONARY ARTERIAL HYPERTENSION
     Dosage: 20 MG, 3X/DAY
     Route: 048
     Dates: start: 20071213
  14. ALLOPURINOL [Concomitant]
     Dosage: UNK
  15. CALCIUM ACETATE [Concomitant]
     Dosage: UNK
  16. VANCOMYCIN [Concomitant]
     Dosage: UNK
     Route: 048
  17. COUMADIN [Concomitant]
     Dosage: UNK
  18. LEXAPRO [Concomitant]
     Dosage: UNK
  19. URSODIOL [Concomitant]
     Dosage: UNK
  20. HOMATROPINE/HYDROCODONE [Concomitant]
     Dosage: UNK
  21. ZOFRAN [Concomitant]
     Dosage: UNK
  22. OXYBUTYNIN [Concomitant]
     Dosage: UNK
  23. BENADRYL [Concomitant]
     Dosage: UNK
  24. HYDROCORTISONE [Concomitant]
     Dosage: UNK
     Route: 061
  25. ASCORBIC ACID [Concomitant]
     Dosage: UNK
  26. SYMBICORT [Concomitant]
     Dosage: UNK
  27. KEPPRA [Concomitant]
     Dosage: UNK
  28. MIRTAZAPINE [Concomitant]
     Dosage: UNK

REACTIONS (1)
  - DEATH [None]
